FAERS Safety Report 9771472 (Version 2)
Quarter: 2014Q1

REPORT INFORMATION
  Report Type: Spontaneous
  Country: JP (occurrence: JP)
  Receive Date: 20131219
  Receipt Date: 20140122
  Transmission Date: 20141002
  Serious: Yes (Hospitalization)
  Sender: FDA-Public Use
  Company Number: JP-ROCHE-1319518

PATIENT
  Age: 69 Year
  Sex: Male
  Weight: 73 kg

DRUGS (7)
  1. XELODA [Suspect]
     Indication: COLON CANCER METASTATIC
     Dosage: 2 WEEKS ADMINISTRATION FOLLOWED BY 1 WEEK REST
     Route: 048
     Dates: start: 20120918, end: 20131025
  2. AVASTIN [Suspect]
     Indication: COLON CANCER METASTATIC
     Route: 041
     Dates: start: 20130918, end: 20131025
  3. ELPLAT [Suspect]
     Indication: COLON CANCER METASTATIC
     Route: 041
     Dates: start: 20120918, end: 20130308
  4. KYTRIL [Concomitant]
     Indication: PROPHYLAXIS OF NAUSEA AND VOMITING
     Route: 048
     Dates: start: 20120918, end: 20131025
  5. NAUZELIN [Concomitant]
     Indication: PROPHYLAXIS OF NAUSEA AND VOMITING
     Route: 048
     Dates: start: 20120918, end: 20131025
  6. GASTER (JAPAN) [Concomitant]
     Indication: PROPHYLAXIS
     Route: 048
     Dates: start: 20120918, end: 20131025
  7. ELPLAT [Concomitant]
     Indication: COLON CANCER METASTATIC
     Route: 041
     Dates: start: 20120918, end: 20130308

REACTIONS (3)
  - Hyperammonaemia [Recovering/Resolving]
  - Neuropathy peripheral [Recovering/Resolving]
  - Gastroenteritis [Recovering/Resolving]
